FAERS Safety Report 17790366 (Version 3)
Quarter: 2020Q4

REPORT INFORMATION
  Report Type: Spontaneous
  Country: US (occurrence: US)
  Receive Date: 20200514
  Receipt Date: 20201104
  Transmission Date: 20210113
  Serious: No
  Sender: FDA-Public Use
  Company Number: NVSC2020US131396

PATIENT
  Sex: Female

DRUGS (1)
  1. ADAKVEO [Suspect]
     Active Substance: CRIZANLIZUMAB-TMCA
     Indication: SICKLE CELL DISEASE
     Dosage: UNK UNK, QMO
     Route: 042
     Dates: start: 202001, end: 202002

REACTIONS (2)
  - Adverse drug reaction [Unknown]
  - Feeling abnormal [Unknown]
